FAERS Safety Report 9828274 (Version 4)
Quarter: 2019Q4

REPORT INFORMATION
  Report Type: Spontaneous
  Country: US (occurrence: US)
  Receive Date: 20140117
  Receipt Date: 20191219
  Transmission Date: 20200122
  Serious: Yes (Other)
  Sender: FDA-Public Use
  Company Number: US-UCBSA-108612

PATIENT
  Age: 53 Year
  Sex: Female
  Weight: 109 kg

DRUGS (10)
  1. RITALIN [Concomitant]
     Active Substance: METHYLPHENIDATE HYDROCHLORIDE
     Indication: FATIGUE
     Dosage: TAKING FOR EIGHT MONTHS
     Route: 048
  2. FOLIC ACID. [Concomitant]
     Active Substance: FOLIC ACID
     Indication: VITAMIN SUPPLEMENTATION
     Dosage: TAKING FOR OVER A YEAR
     Route: 048
  3. SOMA [Concomitant]
     Active Substance: CARISOPRODOL
     Indication: FIBROMYALGIA
     Dosage: TAKING FOR APPROXIMATELY 3-4 YEARS
     Route: 048
  4. CIMZIA [Suspect]
     Active Substance: CERTOLIZUMAB PEGOL
     Indication: RHEUMATOID ARTHRITIS
     Dosage: BEEN TAKING FOR 2 YEARS - 400 MG 2 VIALS ; SELF INJECTION
     Route: 058
     Dates: start: 201102, end: 201309
  5. AMLODIPINE [Concomitant]
     Active Substance: AMLODIPINE BESYLATE
     Indication: BLOOD PRESSURE MEASUREMENT
     Dosage: TAKING FOR EIGHT MONTHS
     Route: 048
  6. POTASSIUM [Concomitant]
     Active Substance: POTASSIUM
     Indication: MINERAL SUPPLEMENTATION
     Dosage: TAKING FOR OVER A YEAR
     Route: 048
  7. NARCO [Concomitant]
     Indication: FIBROMYALGIA
     Dosage: TAKING FOR FOUR YEARS
     Route: 048
  8. CIPRO [Concomitant]
     Active Substance: CIPROFLOXACIN HYDROCHLORIDE
     Dosage: 500MG ONE TABLET EVERY DAY
  9. LEFLUNOMIDE. [Concomitant]
     Active Substance: LEFLUNOMIDE
     Indication: RHEUMATOID ARTHRITIS
     Dosage: TAKING FOR A YEAR
     Route: 048
  10. LOSARTEN HCTZ [Concomitant]
     Indication: BLOOD PRESSURE MEASUREMENT
     Dosage: 100/25 MG; TAKING FOR EIGHT MONTHS
     Route: 048

REACTIONS (1)
  - Urinary tract infection [Recovered/Resolved]

NARRATIVE: CASE EVENT DATE: 201302
